FAERS Safety Report 4678272-8 (Version None)
Quarter: 2005Q2

REPORT INFORMATION
  Report Type: 
  Country: None (occurrence: None)
  Receive Date: 20050527
  Receipt Date: 20050520
  Transmission Date: 20051028
  Serious: Yes (Hospitalization, Other)
  Sender: FDA-Public Use
  Company Number: KII-2005-0016712

PATIENT
  Age: 54 Year
  Sex: Male

DRUGS (2)
  1. MORPHINE SULFATE (SIMILAR TO NDA 19-516) (MOPRHINE SULFATE) OTHER [Suspect]
     Dosage: 60 MG, SEE TEXT, ORAL
     Route: 048
  2. BACLOFEN [Suspect]
     Dosage: ORAL
     Route: 048

REACTIONS (11)
  - ATRIOVENTRICULAR BLOCK FIRST DEGREE [None]
  - BLOOD PRESSURE SYSTOLIC INCREASED [None]
  - CONVULSION [None]
  - DEPRESSED LEVEL OF CONSCIOUSNESS [None]
  - DRUG INEFFECTIVE [None]
  - HYPOKALAEMIA [None]
  - HYPOTENSION [None]
  - INTENTIONAL MISUSE [None]
  - MULTIPLE DRUG OVERDOSE [None]
  - SIMPLE PARTIAL SEIZURES [None]
  - SINUS BRADYCARDIA [None]
